FAERS Safety Report 18260872 (Version 1)
Quarter: 2020Q3

REPORT INFORMATION
  Report Type: Spontaneous
  Country: DE (occurrence: DE)
  Receive Date: 20200914
  Receipt Date: 20200914
  Transmission Date: 20201103
  Serious: No
  Sender: FDA-Public Use
  Company Number: DE-BRISTOL-MYERS SQUIBB COMPANY-BMS-2020-032086

PATIENT
  Age: 87 Year
  Sex: Female

DRUGS (2)
  1. ORENCIA [Suspect]
     Active Substance: ABATACEPT
     Indication: POLYARTHRITIS
     Dosage: 125 MILLIGRAM
     Route: 065
  2. ORENCIA [Suspect]
     Active Substance: ABATACEPT
     Indication: POLYARTHRITIS
     Dosage: 125 MILLIGRAM
     Route: 065

REACTIONS (2)
  - Device malfunction [Unknown]
  - Product dose omission issue [Unknown]
